FAERS Safety Report 19731981 (Version 1)
Quarter: 2021Q3

REPORT INFORMATION
  Report Type: Spontaneous
  Country: JP (occurrence: JP)
  Receive Date: 20210820
  Receipt Date: 20210820
  Transmission Date: 20211014
  Serious: Yes (Other)
  Sender: FDA-Public Use
  Company Number: JP-009507513-2108JPN001552J

PATIENT
  Age: 57 Year
  Sex: Male

DRUGS (1)
  1. NOXAFIL [Suspect]
     Active Substance: POSACONAZOLE
     Indication: INFECTION PROPHYLAXIS
     Dosage: UNK
     Route: 041

REACTIONS (4)
  - Engraft failure [Unknown]
  - Neutrophil count decreased [Unknown]
  - Vomiting [Unknown]
  - Nausea [Unknown]
